FAERS Safety Report 7120898-6 (Version None)
Quarter: 2010Q4

REPORT INFORMATION
  Report Type: 
  Country: None (occurrence: None)
  Receive Date: 20101124
  Receipt Date: 20101115
  Transmission Date: 20110411
  Serious: Yes (Hospitalization)
  Sender: FDA-Public Use
  Company Number: FR-JNJFOC-20101104866

PATIENT
  Age: 79 Year
  Sex: Male

DRUGS (15)
  1. TAVANIC [Suspect]
     Indication: LUNG INFECTION
     Route: 048
  2. TAVANIC [Suspect]
     Route: 048
  3. AMOXICILLIN AND CLAVULANATE POTASSIUM [Suspect]
     Indication: LUNG DISORDER
     Route: 042
  4. PARACETAMOL [Suspect]
     Indication: PRODUCT USED FOR UNKNOWN INDICATION
     Route: 042
  5. RISORDAN [Concomitant]
     Route: 065
  6. CALCIPARINE [Concomitant]
     Route: 065
  7. ALLOPURINOL [Concomitant]
     Route: 065
  8. ROSUVASTATIN CALCIUM [Concomitant]
     Route: 065
  9. PERINDOPRIL [Concomitant]
     Route: 065
  10. PLAVIX [Concomitant]
     Route: 065
  11. NITROGLYCERIN [Concomitant]
     Route: 065
  12. ESOMEPRAZOLE MAGNESIUM [Concomitant]
     Route: 065
  13. LASIX [Concomitant]
     Route: 065
  14. LAROXYL [Concomitant]
     Route: 065
  15. ROHYPNOL [Concomitant]
     Route: 065

REACTIONS (3)
  - CYTOLYTIC HEPATITIS [None]
  - HEPATITIS CHOLESTATIC [None]
  - INCORRECT DOSE ADMINISTERED [None]
